FAERS Safety Report 15660965 (Version 1)
Quarter: 2018Q4

REPORT INFORMATION
  Report Type: Spontaneous
  Country: US (occurrence: US)
  Receive Date: 20181116
  Receipt Date: 20181116
  Transmission Date: 20190205
  Serious: No
  Sender: FDA-Public Use
  Company Number: None

PATIENT
  Age: 72 Year
  Sex: Female

DRUGS (2)
  1. IBRANCE [Suspect]
     Active Substance: PALBOCICLIB
     Dates: start: 201809, end: 201810
  2. FASLODEX [Concomitant]
     Active Substance: FULVESTRANT

REACTIONS (2)
  - Neutropenia [None]
  - Leukopenia [None]

NARRATIVE: CASE EVENT DATE: 20181025
